FAERS Safety Report 12166981 (Version 1)
Quarter: 2016Q1

REPORT INFORMATION
  Report Type: Spontaneous
  Country: US (occurrence: None)
  Receive Date: 20160309
  Receipt Date: 20160309
  Transmission Date: 20160526
  Serious: Yes (Other)
  Sender: FDA-Public Use
  Company Number: None

PATIENT
  Age: 51 Year
  Sex: Male
  Weight: 0 kg

DRUGS (1)
  1. MYCOPHENOLATE 500MG [Suspect]
     Active Substance: MYCOPHENOLIC ACID
     Indication: IDIOPATHIC PULMONARY FIBROSIS
     Dosage: ORAL 047 500MG 2AM/3PM
     Route: 048
     Dates: start: 20140301

REACTIONS (2)
  - Off label use [None]
  - No adverse event [None]

NARRATIVE: CASE EVENT DATE: 20140301
